FAERS Safety Report 6064008-5 (Version None)
Quarter: 2009Q1

REPORT INFORMATION
  Report Type: 
  Country: None (occurrence: None)
  Receive Date: 20090204
  Receipt Date: 20090129
  Transmission Date: 20090719
  Serious: No
  Sender: FDA-Public Use
  Company Number: US-BAYER-200839628NA

PATIENT
  Sex: Female

DRUGS (1)
  1. MIRENA [Suspect]
     Indication: CONTRACEPTION
     Route: 015
     Dates: start: 20070531, end: 20081015

REACTIONS (3)
  - ABDOMINAL PAIN [None]
  - ABDOMINAL PAIN LOWER [None]
  - PELVIC PAIN [None]
